FAERS Safety Report 10974762 (Version 1)
Quarter: 2015Q1

REPORT INFORMATION
  Report Type: Spontaneous
  Country: US (occurrence: None)
  Receive Date: 20150226
  Receipt Date: 20150226
  Transmission Date: 20150721
  Serious: Yes (Other)
  Sender: FDA-Public Use
  Company Number: TPA2009A01596

PATIENT
  Age: 62 Year
  Sex: Male

DRUGS (9)
  1. ULORIC [Suspect]
     Active Substance: FEBUXOSTAT
     Indication: GOUT
     Route: 048
     Dates: start: 20090513, end: 20090520
  2. LANTUS [Concomitant]
     Active Substance: INSULIN GLARGINE
  3. CLONIDINE. [Concomitant]
     Active Substance: CLONIDINE
  4. NOVOLOG [Concomitant]
     Active Substance: INSULIN ASPART
  5. BETA BLOCKER (BETA BLOCKING AGENTS) [Concomitant]
     Active Substance: UNSPECIFIED INGREDIENT
  6. CALCIUM CHANNEL BLOCKER [Concomitant]
     Active Substance: UNSPECIFIED INGREDIENT
  7. COLCHICINE (COLCHICINE) [Concomitant]
     Active Substance: COLCHICINE
  8. ZAROXOLYN (METOLAZONE) [Concomitant]
  9. PREDNISONE. [Concomitant]
     Active Substance: PREDNISONE

REACTIONS (1)
  - Thrombocytopenia [None]

NARRATIVE: CASE EVENT DATE: 20090518
